FAERS Safety Report 10262699 (Version 2)
Quarter: 2014Q2

REPORT INFORMATION
  Report Type: Report from Study
  Country: US (occurrence: US)
  Receive Date: 20140626
  Receipt Date: 20140626
  Transmission Date: 20141212
  Serious: Yes (Death)
  Sender: FDA-Public Use
  Company Number: US-MYLANLABS-2013S1012245

PATIENT
  Age: 63 Year
  Sex: Male

DRUGS (8)
  1. CLOZAPINE TABLETS [Suspect]
     Route: 048
  2. METOPROLOL [Concomitant]
     Route: 048
  3. DEXAMETHASONE [Concomitant]
     Route: 048
  4. LITHIUM [Concomitant]
  5. ZOPHRAN [Concomitant]
     Route: 048
  6. OMEPRAZOLE [Concomitant]
  7. KEPPRA [Concomitant]
  8. ALLOPURINOL [Concomitant]

REACTIONS (1)
  - Brain neoplasm [Fatal]
